FAERS Safety Report 8187652-8 (Version None)
Quarter: 2012Q1

REPORT INFORMATION
  Report Type: 
  Country: None (occurrence: None)
  Receive Date: 20120306
  Receipt Date: 20120229
  Transmission Date: 20120608
  Serious: Yes (Death, Hospitalization, Other)
  Sender: FDA-Public Use
  Company Number: DE-SANOFI-AVENTIS-2011SA068220

PATIENT
  Age: 71 Year
  Sex: Male
  Weight: 110 kg

DRUGS (6)
  1. METOCLOPRAMIDE [Concomitant]
     Indication: ANTIEMETIC SUPPORTIVE CARE
     Route: 048
  2. TAXOTERE [Suspect]
     Dosage: 150 MG TOTAL
     Route: 041
     Dates: start: 20111006, end: 20111006
  3. DEXAMETHASONE [Concomitant]
     Indication: ANTIEMETIC SUPPORTIVE CARE
     Route: 048
     Dates: start: 20111005, end: 20111007
  4. CLEMASTINE [Concomitant]
     Indication: PREMEDICATION
     Route: 065
     Dates: start: 20111006, end: 20111006
  5. RANITIDINE [Concomitant]
     Indication: ALLERGY PROPHYLAXIS
     Route: 065
     Dates: start: 20111006, end: 20111006
  6. TAXOTERE [Suspect]
     Indication: PROSTATE CANCER
     Dosage: 150 MG TOTAL
     Route: 041
     Dates: start: 20111006, end: 20111006

REACTIONS (7)
  - RENAL FAILURE ACUTE [None]
  - FEBRILE NEUTROPENIA [None]
  - PROTHROMBIN TIME PROLONGED [None]
  - STOMATITIS [None]
  - PANCYTOPENIA [None]
  - DIARRHOEA HAEMORRHAGIC [None]
  - NEURALGIA [None]
